FAERS Safety Report 6682362-8 (Version None)
Quarter: 2010Q2

REPORT INFORMATION
  Report Type: 
  Country: None (occurrence: None)
  Receive Date: 20100415
  Receipt Date: 20100406
  Transmission Date: 20101027
  Serious: Yes (Other)
  Sender: FDA-Public Use
  Company Number: JP-PFIZER INC-2010044514

PATIENT
  Age: 58 Year
  Sex: Female

DRUGS (3)
  1. SOLANAX [Suspect]
     Dosage: 1.2 MG/DAY
  2. ZOLOFT [Suspect]
     Dosage: 25 MG/DAY
  3. TAMOXIFEN [Concomitant]

REACTIONS (1)
  - ALTERED STATE OF CONSCIOUSNESS [None]
